FAERS Safety Report 10138391 (Version 2)
Quarter: 2014Q2

REPORT INFORMATION
  Report Type: Report from Study
  Country: HU (occurrence: HU)
  Receive Date: 20140429
  Receipt Date: 20140523
  Transmission Date: 20141212
  Serious: Yes (Hospitalization, Other)
  Sender: FDA-Public Use
  Company Number: HU-ABBVIE-14P-076-1228463-00

PATIENT
  Age: 62 Year
  Sex: Male
  Weight: 73 kg

DRUGS (1)
  1. HUMIRA [Suspect]
     Indication: ANKYLOSING SPONDYLITIS
     Route: 058
     Dates: start: 20130703, end: 20131216

REACTIONS (5)
  - Anal fistula [Recovering/Resolving]
  - Colitis ulcerative [Recovering/Resolving]
  - Myocardial ischaemia [Unknown]
  - Chest pain [Recovered/Resolved]
  - Clostridium difficile infection [Unknown]
